FAERS Safety Report 8938213 (Version 2)
Quarter: 2012Q4

REPORT INFORMATION
  Report Type: 
  Country: CA (occurrence: CA)
  Receive Date: 20121203
  Receipt Date: 20121213
  Transmission Date: 20130627
  Serious: Yes (Death, Hospitalization)
  Sender: FDA-Public Use
  Company Number: PHHY2012CA110090

PATIENT
  Age: 63 Year
  Sex: Male

DRUGS (1)
  1. CLOZARIL [Suspect]
     Indication: SCHIZOPHRENIA
     Dosage: 450 mg (150 mg in the morning and 300 at night), UNK
     Route: 048
     Dates: start: 19950822

REACTIONS (4)
  - Death [Fatal]
  - Sepsis [Recovered/Resolved]
  - Cardiac arrest [Unknown]
  - Pneumonia [Recovered/Resolved]
